FAERS Safety Report 19083040 (Version 4)
Quarter: 2022Q2

REPORT INFORMATION
  Report Type: Report from Study
  Country: CA (occurrence: CA)
  Receive Date: 20210401
  Receipt Date: 20220412
  Transmission Date: 20220721
  Serious: Yes (Hospitalization, Other)
  Sender: FDA-Public Use
  Company Number: CA-JNJFOC-20210350489

PATIENT
  Age: 70 Year
  Sex: Female
  Weight: 99 kg

DRUGS (4)
  1. STELARA [Suspect]
     Active Substance: USTEKINUMAB
     Indication: Psoriasis
     Dosage: THERAPY START DATE: 04-SEP-2019
     Route: 058
     Dates: start: 20190828
  2. STELARA [Suspect]
     Active Substance: USTEKINUMAB
     Indication: Necrobiosis lipoidica diabeticorum
     Dosage: THE PHYSICIAN WANTS INITIAL RE-INDUCTION OF STELARA AT 90 MG SC WEEK 0, 4, 16, THEN Q 12 WEEKS.
     Route: 058
     Dates: start: 20190904, end: 20201024
  3. STELARA [Suspect]
     Active Substance: USTEKINUMAB
     Indication: Rheumatoid arthritis
  4. STELARA [Suspect]
     Active Substance: USTEKINUMAB
     Indication: SLE arthritis

REACTIONS (8)
  - Pyelonephritis acute [Unknown]
  - Myocardial infarction [Unknown]
  - Weight decreased [Unknown]
  - Coma [Unknown]
  - Lung disorder [Unknown]
  - Sepsis [Unknown]
  - Necrobiosis lipoidica diabeticorum [Unknown]
  - Insomnia [Unknown]

NARRATIVE: CASE EVENT DATE: 20201201
